FAERS Safety Report 24770799 (Version 1)
Quarter: 2024Q4

REPORT INFORMATION
  Report Type: Spontaneous
  Country: CN (occurrence: CN)
  Receive Date: 20241224
  Receipt Date: 20241224
  Transmission Date: 20250114
  Serious: Yes (Hospitalization)
  Sender: BAYER HEALTHCARE PHARMACEUTICALS INC.
  Company Number: CN-BAYER-2024A181127

PATIENT
  Age: 62 Year
  Sex: Male
  Weight: 49.2 kg

DRUGS (5)
  1. STIVARGA [Suspect]
     Active Substance: REGORAFENIB MONOHYDRATE
     Indication: Chemotherapy
     Dosage: 80 MG, QD
     Route: 048
     Dates: start: 20241202, end: 20241213
  2. CARBOPLATIN [Suspect]
     Active Substance: CARBOPLATIN
     Indication: Chemotherapy
     Dosage: 550 MG, QD
     Route: 041
     Dates: start: 20241204, end: 20241204
  3. TAXOL [Suspect]
     Active Substance: PACLITAXEL
     Indication: Chemotherapy
     Dosage: 257 MG, QD
     Route: 041
     Dates: start: 20241204, end: 20241204
  4. SODIUM CHLORIDE [Concomitant]
     Active Substance: SODIUM CHLORIDE
     Indication: Vehicle solution use
     Dosage: 500 ML, QD
     Route: 041
     Dates: start: 20241204, end: 20241204
  5. DEXTROSE [Concomitant]
     Active Substance: DEXTROSE MONOHYDRATE
     Indication: Vehicle solution use
     Dosage: 250 ML, QD
     Route: 041
     Dates: start: 20241204, end: 20241204

REACTIONS (4)
  - Agranulocytosis [Recovering/Resolving]
  - White blood cell count increased [Recovering/Resolving]
  - Incorrect dose administered [None]
  - Product prescribing issue [None]

NARRATIVE: CASE EVENT DATE: 20241202
